FAERS Safety Report 5463569-4 (Version None)
Quarter: 2007Q3

REPORT INFORMATION
  Report Type: 
  Country: None (occurrence: None)
  Receive Date: 20070919
  Receipt Date: 20070905
  Transmission Date: 20080115
  Serious: Yes (Death)
  Sender: FDA-Public Use
  Company Number: 2007S1000338

PATIENT
  Age: 66 Year
  Sex: Female

DRUGS (2)
  1. CUBICIN [Suspect]
     Indication: ENTEROCOCCAL INFECTION
     Dosage: 4 MG/KG; Q24H; IV
     Route: 042
  2. CHEMOTHERAPEUTICS NOS [Concomitant]

REACTIONS (3)
  - DRUG RESISTANCE [None]
  - MENINGITIS ENTEROCOCCAL [None]
  - THROMBOCYTOPENIA [None]
